FAERS Safety Report 20792073 (Version 1)
Quarter: 2022Q2

REPORT INFORMATION
  Report Type: Spontaneous
  Country: US (occurrence: US)
  Receive Date: 20220505
  Receipt Date: 20220505
  Transmission Date: 20220721
  Serious: No
  Sender: FDA-Public Use
  Company Number: US-Blueprint Medicines Corporation-SP-US-2022-001160

PATIENT
  Age: 59 Year
  Sex: Female

DRUGS (2)
  1. AYVAKIT [Suspect]
     Active Substance: AVAPRITINIB
     Indication: Gastrointestinal stromal tumour
     Dosage: TAKE 100MG TABLET ON SAT, SUN ALONG WITH 200MG TABLET ON MON, TUES, WED, THURS, FRI
     Route: 048
     Dates: start: 20191118
  2. AYVAKIT [Suspect]
     Active Substance: AVAPRITINIB
     Dosage: TAKE 100MG TABLET ON SAT, SUN ALONG WITH 200MG TABLET ON MON, TUES, WED, THURS, FRI
     Route: 048
     Dates: start: 20191118

REACTIONS (3)
  - Nausea [Recovered/Resolved]
  - Asthenia [Recovered/Resolved]
  - Off label use [Not Recovered/Not Resolved]

NARRATIVE: CASE EVENT DATE: 20220411
